FAERS Safety Report 16827047 (Version 2)
Quarter: 2019Q4

REPORT INFORMATION
  Report Type: Spontaneous
  Country: US (occurrence: US)
  Receive Date: 20190919
  Receipt Date: 20191030
  Transmission Date: 20200122
  Serious: Yes (Hospitalization)
  Sender: FDA-Public Use
  Company Number: US-HORIZON-BUP-RAV-0045-2019

PATIENT
  Age: 16 Year
  Sex: Female

DRUGS (2)
  1. RAVICTI [Suspect]
     Active Substance: GLYCEROL PHENYLBUTYRATE
     Indication: UREA CYCLE DISORDER
  2. BUPHENYL [Suspect]
     Active Substance: SODIUM PHENYLBUTYRATE
     Indication: UREA CYCLE DISORDER
     Dosage: 500MG 3 TIMES DAILY
     Route: 048
     Dates: start: 20161122, end: 20190527

REACTIONS (3)
  - Insurance issue [Recovered/Resolved]
  - Ammonia increased [Recovered/Resolved]
  - Therapy cessation [Recovered/Resolved]
